FAERS Safety Report 10640299 (Version 1)
Quarter: 2014Q4

REPORT INFORMATION
  Report Type: Spontaneous
  Country: US (occurrence: None)
  Receive Date: 20141205
  Receipt Date: 20141205
  Transmission Date: 20150529
  Serious: No
  Sender: FDA-Public Use
  Company Number: None

PATIENT

DRUGS (1)
  1. OPANA ER [Suspect]
     Active Substance: OXYMORPHONE HYDROCHLORIDE

REACTIONS (5)
  - Respiratory rate decreased [None]
  - Blood lactic acid increased [None]
  - Lethargy [None]
  - Drug prescribing error [None]
  - Unresponsive to stimuli [None]
